FAERS Safety Report 23860428 (Version 2)
Quarter: 2024Q2

REPORT INFORMATION
  Report Type: Spontaneous
  Country: US (occurrence: None)
  Receive Date: 20240516
  Receipt Date: 20240611
  Transmission Date: 20240716
  Serious: No
  Sender: FDA-Public Use
  Company Number: 2024A094642

PATIENT
  Age: 28905 Day
  Sex: Female

DRUGS (1)
  1. BUDESONIDE\FORMOTEROL [Suspect]
     Active Substance: BUDESONIDE\FORMOTEROL
     Dosage: 160 UG, UNKNOWN FREQUENCY UNKNOWN
     Route: 055
     Dates: start: 20240415

REACTIONS (3)
  - Memory impairment [Unknown]
  - Bronchitis [Unknown]
  - Device malfunction [Unknown]

NARRATIVE: CASE EVENT DATE: 20240417
